FAERS Safety Report 10220234 (Version 1)
Quarter: 2014Q2

REPORT INFORMATION
  Report Type: Spontaneous
  Country: FR (occurrence: FR)
  Receive Date: 20140606
  Receipt Date: 20140606
  Transmission Date: 20141212
  Serious: Yes (Hospitalization)
  Sender: FDA-Public Use
  Company Number: FR-ROCHE-1412827

PATIENT
  Age: 74 Year
  Sex: Male

DRUGS (10)
  1. ROCEPHINE [Suspect]
     Indication: PRODUCT USED FOR UNKNOWN INDICATION
     Route: 065
     Dates: start: 20140430, end: 20140502
  2. BACTRIM [Suspect]
     Indication: PRODUCT USED FOR UNKNOWN INDICATION
     Route: 065
     Dates: start: 20140502, end: 20140507
  3. AMIKLIN [Suspect]
     Indication: PRODUCT USED FOR UNKNOWN INDICATION
     Dosage: 1 DOSE
     Route: 065
     Dates: start: 20140501, end: 20140502
  4. COAPROVEL [Concomitant]
     Route: 065
  5. MONO TILDIEM [Concomitant]
     Route: 065
  6. METFORMIN [Concomitant]
     Route: 065
  7. ALLOPURINOL [Concomitant]
     Route: 065
  8. MEFOXIN [Concomitant]
  9. PARACETAMOL [Concomitant]
  10. AMOXICILLIN [Concomitant]

REACTIONS (1)
  - Renal failure [Unknown]
